FAERS Safety Report 11158461 (Version 2)
Quarter: 2016Q2

REPORT INFORMATION
  Report Type: Report from Study
  Country: CA (occurrence: CA)
  Receive Date: 20150603
  Receipt Date: 20160531
  Transmission Date: 20160815
  Serious: Yes (Other)
  Sender: FDA-Public Use
  Company Number: CA-BAYER-2015-291959

PATIENT
  Age: 51 Year
  Sex: Female

DRUGS (11)
  1. TYLENOL [Concomitant]
     Active Substance: ACETAMINOPHEN
     Dosage: AS NEEDED
  2. GABAPENTIN. [Concomitant]
     Active Substance: GABAPENTIN
     Dosage: 1800 MG, QD
  3. BETASERON [Suspect]
     Active Substance: INTERFERON BETA-1B
     Indication: MULTIPLE SCLEROSIS
     Dosage: 0.25 MG, UNK
     Dates: start: 20080701
  4. BACLOFEN. [Concomitant]
     Active Substance: BACLOFEN
     Dosage: 15 MG, DAILY
  5. VITALUX [VIT C,BETACAROT,CU+,B2,SE+,TOCOFERSOLAN,ZN+] [Concomitant]
     Dosage: UNK
  6. VITAMIN D [Concomitant]
     Active Substance: CHOLECALCIFEROL
     Dosage: 4000 IU, QD
  7. MELOXICAM. [Concomitant]
     Active Substance: MELOXICAM
     Dosage: AS NEEDED
  8. BETASERON [Suspect]
     Active Substance: INTERFERON BETA-1B
     Indication: MULTIPLE SCLEROSIS
     Dosage: UNK
     Dates: end: 20160401
  9. NAPROXEN. [Concomitant]
     Active Substance: NAPROXEN
     Dosage: AS NEEDED
  10. ADVIL [IBUPROFEN] [Concomitant]
     Active Substance: IBUPROFEN
     Dosage: 400 MG, AS NEEDED
  11. GABAPENTIN. [Concomitant]
     Active Substance: GABAPENTIN
     Dosage: 3600 MG, QD

REACTIONS (6)
  - Multiple sclerosis [None]
  - Gait disturbance [Unknown]
  - Injection site pain [Unknown]
  - Abasia [Unknown]
  - Balance disorder [None]
  - Tremor [None]

NARRATIVE: CASE EVENT DATE: 200807
